FAERS Safety Report 18360010 (Version 1)
Quarter: 2020Q4

REPORT INFORMATION
  Report Type: Spontaneous
  Country: US (occurrence: US)
  Receive Date: 20201008
  Receipt Date: 20201008
  Transmission Date: 20210114
  Serious: No
  Sender: FDA-Public Use
  Company Number: US-GLAXOSMITHKLINE-US2020AMR194904

PATIENT

DRUGS (1)
  1. ZEJULA [Suspect]
     Active Substance: NIRAPARIB
     Indication: ABDOMINAL LYMPHADENOPATHY
     Dosage: 300 MG, QD

REACTIONS (3)
  - Nausea [Unknown]
  - Product use in unapproved indication [Unknown]
  - Off label use [Unknown]
